FAERS Safety Report 13212720 (Version 8)
Quarter: 2017Q4

REPORT INFORMATION
  Report Type: Spontaneous
  Country: AU (occurrence: AU)
  Receive Date: 20170210
  Receipt Date: 20171025
  Transmission Date: 20180320
  Serious: Yes (Hospitalization, Other)
  Sender: FDA-Public Use
  Company Number: AU-PFIZER INC-2017053021

PATIENT
  Age: 67 Year
  Sex: Female

DRUGS (2)
  1. VANCOMYCIN HCL [Suspect]
     Active Substance: VANCOMYCIN HYDROCHLORIDE
     Indication: CATARACT OPERATION
     Dosage: SINGLE DOSE
     Route: 031
     Dates: start: 20160811, end: 20160811
  2. VANCOMYCIN HCL [Suspect]
     Active Substance: VANCOMYCIN HYDROCHLORIDE
     Indication: PROPHYLAXIS

REACTIONS (9)
  - Vision blurred [Recovered/Resolved]
  - Visual acuity reduced [Unknown]
  - Lacrimation increased [Unknown]
  - Blindness [Not Recovered/Not Resolved]
  - Product use issue [Unknown]
  - Haemorrhagic disorder [Recovered/Resolved with Sequelae]
  - Retinal vasculitis [Recovered/Resolved with Sequelae]
  - Feeling abnormal [Unknown]
  - Depressed mood [Unknown]

NARRATIVE: CASE EVENT DATE: 20160811
